FAERS Safety Report 23204442 (Version 1)
Quarter: 2023Q4

REPORT INFORMATION
  Report Type: Spontaneous
  Country: AT (occurrence: AT)
  Receive Date: 20231120
  Receipt Date: 20231120
  Transmission Date: 20240109
  Serious: Yes (Hospitalization)
  Sender: FDA-Public Use
  Company Number: AT-SANDOZ-SDZ2023AT055016

PATIENT
  Age: 64 Year
  Sex: Female
  Weight: 107 kg

DRUGS (6)
  1. ADALIMUMAB [Suspect]
     Active Substance: ADALIMUMAB\ISOPROPYL ALCOHOL
     Dosage: FREQUENCY TEXT: RE-INDUCTION, SHORTENING TO EVERY WEEK
     Route: 058
     Dates: start: 202106, end: 202109
  2. ADALIMUMAB [Suspect]
     Active Substance: ADALIMUMAB\ISOPROPYL ALCOHOL
     Indication: Colitis ulcerative
     Route: 058
     Dates: start: 202008
  3. BEZLOTOXUMAB [Concomitant]
     Active Substance: BEZLOTOXUMAB
     Indication: Product used for unknown indication
     Dosage: UNK
     Route: 065
  4. Cortiment [Concomitant]
     Indication: Product used for unknown indication
     Dosage: UNK
     Route: 065
  5. INSULIN NOS [Concomitant]
     Active Substance: INSULIN NOS
     Indication: Product used for unknown indication
     Dosage: UNK
     Route: 065
  6. VANCOMYCIN [Concomitant]
     Active Substance: VANCOMYCIN
     Indication: Product used for unknown indication
     Dosage: FREQUENCY TEXT: PULSE AND TAPER
     Route: 048
     Dates: start: 202109

REACTIONS (16)
  - Clostridium difficile colitis [Unknown]
  - Nausea [Unknown]
  - Clostridium difficile colitis [Unknown]
  - Urinary tract infection [Unknown]
  - Vomiting [Unknown]
  - Diabetic gastroparesis [Unknown]
  - Hyperglycaemic crisis [Unknown]
  - Diabetic gastroparesis [Unknown]
  - Enthesopathy [Unknown]
  - Clostridium difficile colitis [Unknown]
  - Diarrhoea [Unknown]
  - Clostridium difficile colitis [Unknown]
  - Colitis ulcerative [Unknown]
  - Pseudopolyp [Unknown]
  - General physical health deterioration [Unknown]
  - Pain in extremity [Unknown]

NARRATIVE: CASE EVENT DATE: 20210601
